FAERS Safety Report 8132887-3 (Version None)
Quarter: 2012Q1

REPORT INFORMATION
  Report Type: 
  Country: None (occurrence: None)
  Receive Date: 20120213
  Receipt Date: 20120209
  Transmission Date: 20120608
  Serious: No
  Sender: FDA-Public Use
  Company Number: US-BAYER-2012-014147

PATIENT
  Age: 64 Year
  Sex: Female
  Weight: 48 kg

DRUGS (1)
  1. NAPROXEN (ALEVE) [Suspect]
     Dosage: 1 TABLET
     Route: 048
     Dates: start: 20120208

REACTIONS (1)
  - DYSPEPSIA [None]
